FAERS Safety Report 9017507 (Version 1)
Quarter: 2013Q1

REPORT INFORMATION
  Report Type: Other
  Country: GB (occurrence: GB)
  Receive Date: 20130117
  Receipt Date: 20130117
  Transmission Date: 20140127
  Serious: Yes (Other)
  Sender: FDA-Public Use
  Company Number: GB-WATSON-2013-00681

PATIENT
  Age: 46 Year
  Sex: Female
  Weight: 60 kg

DRUGS (1)
  1. TRIMETHOPRIM (WATSON LABORATORIES) [Suspect]
     Indication: URINARY TRACT INFECTION
     Dosage: 200 MG, BID, 200MG ONE TWICE DAILY
     Route: 048
     Dates: start: 2012, end: 2012

REACTIONS (2)
  - Arthritis [Recovering/Resolving]
  - Mobility decreased [Recovering/Resolving]
